FAERS Safety Report 9521568 (Version 1)
Quarter: 2013Q1

REPORT INFORMATION
  Report Type: Spontaneous
  Country: US (occurrence: None)
  Receive Date: 20130305
  Receipt Date: 20130305
  Transmission Date: 20140127
  Serious: Yes (Disabling)
  Sender: FDA-Public Use
  Company Number: 163-21880-12073228

PATIENT
  Age: 56 Year
  Sex: Male

DRUGS (2)
  1. REVLIMID (LENALIDOMIDE) (CAPSULES) [Suspect]
     Indication: PLASMA CELL MYELOMA
     Route: 048
     Dates: start: 20120717, end: 20120730
  2. ZOMETA (ZOLEDRONIC ACID) [Concomitant]

REACTIONS (3)
  - Neuropathy peripheral [None]
  - Hypoaesthesia [None]
  - Gait disturbance [None]
